FAERS Safety Report 7512801-1 (Version None)
Quarter: 2011Q2

REPORT INFORMATION
  Report Type: 
  Country: None (occurrence: None)
  Receive Date: 20110531
  Receipt Date: 20110523
  Transmission Date: 20111010
  Serious: Yes (Other)
  Sender: FDA-Public Use
  Company Number: B0722004A

PATIENT
  Age: 67 Year
  Sex: Female

DRUGS (1)
  1. PAXIL [Suspect]
     Route: 048

REACTIONS (1)
  - HAEMORRHAGIC DISORDER [None]
